FAERS Safety Report 21856461 (Version 7)
Quarter: 2023Q1

REPORT INFORMATION
  Report Type: Report from Study
  Country: US (occurrence: US)
  Receive Date: 20230112
  Receipt Date: 20230320
  Transmission Date: 20230417
  Serious: Yes (Hospitalization)
  Sender: FDA-Public Use
  Company Number: US-002147023-NVSC2023US006229

PATIENT
  Age: 62 Year
  Sex: Female

DRUGS (3)
  1. PIQRAY [Suspect]
     Active Substance: ALPELISIB
     Indication: Product used for unknown indication
     Dosage: 300 MG, QD
     Route: 048
     Dates: start: 20230103, end: 20230110
  2. PIQRAY [Suspect]
     Active Substance: ALPELISIB
     Dosage: UNK
     Route: 065
  3. PIQRAY [Suspect]
     Active Substance: ALPELISIB
     Dosage: 200 MG, QMO
     Route: 048

REACTIONS (10)
  - Ill-defined disorder [Unknown]
  - Fall [Unknown]
  - Constipation [Unknown]
  - Frequent bowel movements [Unknown]
  - Irritability [Unknown]
  - Pollakiuria [Unknown]
  - Taste disorder [Unknown]
  - Peripheral swelling [Unknown]
  - Blood glucose increased [Unknown]
  - Inappropriate schedule of product administration [Unknown]

NARRATIVE: CASE EVENT DATE: 20230110
